FAERS Safety Report 9338068 (Version 2)
Quarter: 2013Q3

REPORT INFORMATION
  Report Type: Spontaneous
  Country: DE (occurrence: DE)
  Receive Date: 20130610
  Receipt Date: 20130722
  Transmission Date: 20140515
  Serious: Yes (Other)
  Sender: FDA-Public Use
  Company Number: DE-ROCHE-1234273

PATIENT
  Sex: Female

DRUGS (2)
  1. HERCEPTIN [Suspect]
     Indication: BREAST CANCER
     Route: 065
     Dates: start: 2011, end: 2011
  2. ANASTROZOL [Concomitant]
     Indication: BREAST CANCER
     Route: 048
     Dates: start: 20110509

REACTIONS (2)
  - Nail discolouration [Not Recovered/Not Resolved]
  - Nail discolouration [Not Recovered/Not Resolved]
